FAERS Safety Report 16608807 (Version 3)
Quarter: 2020Q3

REPORT INFORMATION
  Report Type: Spontaneous
  Country: CA (occurrence: CA)
  Receive Date: 20190722
  Receipt Date: 20200819
  Transmission Date: 20201102
  Serious: Yes (Other)
  Sender: FDA-Public Use
  Company Number: CA-PFIZER INC-2019308596

PATIENT
  Age: 64 Year
  Sex: Female
  Weight: 80 kg

DRUGS (3)
  1. VITAMIN D [COLECALCIFEROL] [Concomitant]
     Active Substance: CHOLECALCIFEROL
     Dosage: 2000 IU, DAILY
  2. METHOTREXATE SODIUM. [Suspect]
     Active Substance: METHOTREXATE SODIUM
     Dosage: 25 MG, WEEKLY
     Route: 058
  3. REMICADE [Concomitant]
     Active Substance: INFLIXIMAB
     Dosage: 300 MG, EVERY 8 WEEKS
     Route: 042
     Dates: start: 2010, end: 201905

REACTIONS (5)
  - Off label use [Unknown]
  - Treatment failure [Unknown]
  - Porphyria [Unknown]
  - Drug ineffective [Unknown]
  - Product use issue [Unknown]
